FAERS Safety Report 25978204 (Version 1)
Quarter: 2025Q4

REPORT INFORMATION
  Report Type: Spontaneous
  Country: EU (occurrence: None)
  Receive Date: 20251030
  Receipt Date: 20251030
  Transmission Date: 20260117
  Serious: Yes (Other)
  Sender: ORGANON
  Company Number: None

PATIENT
  Age: 37 Year
  Sex: Female

DRUGS (3)
  1. DESLORATADINE [Suspect]
     Active Substance: DESLORATADINE
     Indication: Rhinitis allergic
     Dosage: 1 DOSAGE FORM, QD
  2. INNOVAIR [Suspect]
     Active Substance: BECLOMETHASONE DIPROPIONATE\FORMOTEROL
     Indication: Asthma
     Dosage: UNK
  3. MOMETASONE FUROATE MONOHYDRATE [Suspect]
     Active Substance: MOMETASONE FUROATE MONOHYDRATE
     Indication: Rhinitis allergic
     Dosage: UNK , QD

REACTIONS (3)
  - Foetal death [Recovered/Resolved with Sequelae]
  - Maternal exposure before pregnancy [Recovered/Resolved]
  - Maternal exposure during pregnancy [Recovered/Resolved]

NARRATIVE: CASE EVENT DATE: 20231001
